FAERS Safety Report 5168178-2 (Version None)
Quarter: 2006Q4

REPORT INFORMATION
  Report Type: 
  Country: None (occurrence: None)
  Receive Date: 20061130
  Receipt Date: 20040811
  Transmission Date: 20070319
  Serious: Yes (Death)
  Sender: FDA-Public Use
  Company Number: 23100334

PATIENT
  Age: 53 Year
  Sex: Male

DRUGS (1)
  1. ARGATROBAN [Suspect]
     Indication: COAGULOPATHY

REACTIONS (3)
  - DISSEMINATED INTRAVASCULAR COAGULATION [None]
  - POST PROCEDURAL COMPLICATION [None]
  - SEPSIS [None]
